FAERS Safety Report 4585205-1 (Version None)
Quarter: 2005Q1

REPORT INFORMATION
  Report Type: 
  Country: None (occurrence: None)
  Receive Date: 20050214
  Receipt Date: 20050129
  Transmission Date: 20050727
  Serious: Yes (Other)
  Sender: FDA-Public Use
  Company Number: 2005024677

PATIENT

DRUGS (9)
  1. CELEBREX [Suspect]
     Indication: OSTEOARTHRITIS
  2. BEXTRA [Suspect]
     Indication: OSTEOARTHRITIS
     Dosage: 10 MG
  3. ROFECOXIB [Suspect]
     Indication: OSTEOARTHRITIS
  4. ENALAPRIL MALEATE [Concomitant]
  5. WARFARIN SODIUM [Concomitant]
  6. METROPOLOL SUCCINATE (METROPOLOL SUCCINATE) [Concomitant]
  7. AMLODIPINE BESYLATE [Concomitant]
  8. ROSIGLITAZONE MALEATE [Concomitant]
  9. BIMATOPROST (BIMATOPROST) [Concomitant]

REACTIONS (2)
  - ATRIAL FIBRILLATION [None]
  - CEREBROVASCULAR ACCIDENT [None]
